FAERS Safety Report 4753863-4 (Version None)
Quarter: 2005Q3

REPORT INFORMATION
  Report Type: 
  Country: None (occurrence: None)
  Receive Date: 20050826
  Receipt Date: 20050727
  Transmission Date: 20060218
  Serious: Yes (Disabling)
  Sender: FDA-Public Use
  Company Number: FR-GLAXOSMITHKLINE-B0389860A

PATIENT
  Age: 44 Year
  Sex: Male
  Weight: 94 kg

DRUGS (3)
  1. ZEFFIX [Suspect]
     Indication: HEPATITIS B
     Dosage: 100MG PER DAY
     Route: 048
     Dates: start: 20031201
  2. ANTI-DEPRESSIVE MEDICATION [Concomitant]
     Indication: DEPRESSION
     Route: 065
  3. FOZIRETIC [Concomitant]
     Indication: HYPERTENSION
     Route: 048

REACTIONS (7)
  - ABDOMINAL PAIN LOWER [None]
  - COLITIS COLLAGENOUS [None]
  - DERMATITIS [None]
  - DIARRHOEA [None]
  - NAUSEA [None]
  - RECTAL HAEMORRHAGE [None]
  - SKIN IRRITATION [None]
